FAERS Safety Report 21998249 (Version 1)
Quarter: 2023Q1

REPORT INFORMATION
  Report Type: Spontaneous
  Country: US (occurrence: US)
  Receive Date: 20230216
  Receipt Date: 20230216
  Transmission Date: 20230417
  Serious: No
  Sender: FDA-Public Use
  Company Number: US-JNJFOC-20230220342

PATIENT
  Age: 89 Year
  Sex: Female

DRUGS (1)
  1. WOMENS ROGAINE UNSCENTED [Suspect]
     Active Substance: MINOXIDIL
     Indication: Alopecia
     Dosage: CAPFUL
     Route: 061
     Dates: start: 20230108

REACTIONS (2)
  - Dizziness [Unknown]
  - Overdose [Unknown]

NARRATIVE: CASE EVENT DATE: 20230101
